FAERS Safety Report 23409643 (Version 2)
Quarter: 2024Q1

REPORT INFORMATION
  Report Type: Spontaneous
  Country: US (occurrence: US)
  Receive Date: 20240117
  Receipt Date: 20240123
  Transmission Date: 20240410
  Serious: No
  Sender: FDA-Public Use
  Company Number: US-PFIZER INC-202400011252

PATIENT
  Age: 66 Year
  Sex: Male
  Weight: 107.95 kg

DRUGS (1)
  1. PAXLOVID [Suspect]
     Active Substance: NIRMATRELVIR\RITONAVIR
     Indication: COVID-19 treatment
     Dosage: NIRMATRELVIR 300 MG/RITONAVIR 100 MG, 2X/DAY (IN THE MORNING AND IN THE EVENING)
     Route: 048
     Dates: start: 20240108

REACTIONS (6)
  - Diarrhoea [Not Recovered/Not Resolved]
  - Lip blister [Not Recovered/Not Resolved]
  - Oral mucosal blistering [Not Recovered/Not Resolved]
  - Blister [Not Recovered/Not Resolved]
  - Chest pain [Unknown]
  - Painful respiration [Unknown]

NARRATIVE: CASE EVENT DATE: 20240101
